FAERS Safety Report 8217633-7 (Version None)
Quarter: 2012Q1

REPORT INFORMATION
  Report Type: 
  Country: None (occurrence: None)
  Receive Date: 20120305
  Receipt Date: 20111013
  Transmission Date: 20120608
  Serious: No
  Sender: FDA-Public Use
  Company Number: 1000024676

PATIENT
  Age: 55 Year
  Sex: Female

DRUGS (1)
  1. DALIRESP [Suspect]
     Indication: CHRONIC OBSTRUCTIVE PULMONARY DISEASE
     Dosage: 500 MCG (500 MCG, 1 IN 1 D), ORAL
     Route: 048
     Dates: start: 20111011

REACTIONS (7)
  - PAIN [None]
  - ANXIETY [None]
  - PARAESTHESIA [None]
  - HEADACHE [None]
  - PANIC ATTACK [None]
  - VOMITING [None]
  - DIARRHOEA [None]
